FAERS Safety Report 8186805-2 (Version None)
Quarter: 2012Q1

REPORT INFORMATION
  Report Type: 
  Country: None (occurrence: None)
  Receive Date: 20120306
  Receipt Date: 20120223
  Transmission Date: 20120608
  Serious: Yes (Hospitalization, Other)
  Sender: FDA-Public Use
  Company Number: BR-BRISTOL-MYERS SQUIBB COMPANY-16417917

PATIENT
  Age: 32 Year
  Sex: Male

DRUGS (2)
  1. LORAX [Concomitant]
  2. ABILIFY [Suspect]
     Indication: BIPOLAR DISORDER
     Route: 048

REACTIONS (2)
  - BIPOLAR DISORDER [None]
  - DIABETES MELLITUS [None]
